FAERS Safety Report 7648725-9 (Version None)
Quarter: 2011Q3

REPORT INFORMATION
  Report Type: 
  Country: None (occurrence: None)
  Receive Date: 20110801
  Receipt Date: 20110725
  Transmission Date: 20111222
  Serious: Yes (Hospitalization)
  Sender: FDA-Public Use
  Company Number: PHHO2008GB13745

PATIENT
  Sex: Male

DRUGS (2)
  1. EVEROLIMUS [Suspect]
     Indication: HEART TRANSPLANT
     Dosage: 0.75 MG, BID
     Route: 048
     Dates: start: 20071028
  2. NEORAL [Suspect]
     Indication: HEART TRANSPLANT
     Dosage: 75 MG, QD

REACTIONS (8)
  - BLOOD CREATININE INCREASED [None]
  - OEDEMA PERIPHERAL [None]
  - NEPHROPATHY TOXIC [None]
  - GLOMERULOSCLEROSIS [None]
  - FLUID OVERLOAD [None]
  - KIDNEY FIBROSIS [None]
  - DYSPNOEA [None]
  - TOXICITY TO VARIOUS AGENTS [None]
